FAERS Safety Report 9483605 (Version 2)
Quarter: 2013Q3

REPORT INFORMATION
  Report Type: Spontaneous
  Country: CA (occurrence: CA)
  Receive Date: 20130828
  Receipt Date: 20130828
  Transmission Date: 20140515
  Serious: Yes (Other)
  Sender: FDA-Public Use
  Company Number: CA-AMGEN-KDL284143

PATIENT
  Age: 61 Year
  Sex: Male
  Weight: 86.3 kg

DRUGS (9)
  1. ENBREL [Suspect]
     Indication: ANKYLOSING SPONDYLITIS
     Dosage: UNK UNK, QWK
     Route: 058
     Dates: start: 20080410
  2. HYDROMORPHONE [Concomitant]
     Dosage: UNK UNK, UNK
  3. TESTOSTERONE GEL [Concomitant]
     Dosage: UNK UNK, UNK
  4. METHOTREXATE [Concomitant]
     Dosage: UNK UNK, UNK
  5. CITALOPRAM [Concomitant]
     Dosage: UNK UNK, UNK
  6. ALENDRONATE SODIUM [Concomitant]
     Dosage: UNK UNK, UNK
  7. WARFARIN [Concomitant]
     Dosage: UNK UNK, UNK
  8. EZETIMIBE [Concomitant]
     Dosage: UNK UNK, UNK
  9. ATENOLOL [Concomitant]
     Dosage: UNK UNK, UNK

REACTIONS (6)
  - Cardiac fibrillation [Recovering/Resolving]
  - Blood disorder [Recovering/Resolving]
  - Pallor [Recovering/Resolving]
  - Headache [Recovering/Resolving]
  - Oropharyngeal pain [Unknown]
  - Cough [Unknown]
